FAERS Safety Report 5610720-9 (Version None)
Quarter: 2008Q1

REPORT INFORMATION
  Report Type: 
  Country: None (occurrence: None)
  Receive Date: 20080201
  Receipt Date: 20080129
  Transmission Date: 20080703
  Serious: Yes (Death)
  Sender: FDA-Public Use
  Company Number: FR-BAXTER-2007BH008447

PATIENT
  Age: 69 Year
  Sex: Male

DRUGS (2)
  1. GAMMAGARD LIQUID [Suspect]
     Indication: HYPOGAMMAGLOBULINAEMIA
     Dosage: DOSE UNIT:UNITS PER KILOGRAM
  2. GAMMAGARD LIQUID [Suspect]
     Indication: INFECTION
     Dosage: DOSE UNIT:UNITS PER KILOGRAM

REACTIONS (3)
  - CONDITION AGGRAVATED [None]
  - DEATH [None]
  - RENAL FAILURE [None]
